FAERS Safety Report 10214113 (Version 2)
Quarter: 2015Q3

REPORT INFORMATION
  Report Type: Spontaneous
  Country: PL (occurrence: PL)
  Receive Date: 20140603
  Receipt Date: 20150820
  Transmission Date: 20151125
  Serious: Yes (Life-Threatening, Hospitalization, Other)
  Sender: FDA-Public Use
  Company Number: PL-ELI_LILLY_AND_COMPANY-PL201405009431

PATIENT
  Age: 60 Year
  Sex: Female

DRUGS (1)
  1. OLANZAPINE LONG-ACTING IM [Suspect]
     Active Substance: OLANZAPINE PAMOATE
     Indication: SCHIZOPHRENIA
     Dosage: 405 MG, MONTHLY (1/M)
     Route: 030

REACTIONS (15)
  - Body temperature increased [Recovering/Resolving]
  - Confusional state [Recovering/Resolving]
  - Drug level increased [Recovering/Resolving]
  - Dysarthria [Recovering/Resolving]
  - Altered state of consciousness [Recovering/Resolving]
  - Toxicity to various agents [Recovering/Resolving]
  - Muscle rigidity [Recovering/Resolving]
  - Tachycardia [Recovering/Resolving]
  - Agitation [Recovering/Resolving]
  - Somnolence [Recovering/Resolving]
  - Upper airway obstruction [Recovered/Resolved]
  - Loss of consciousness [Recovering/Resolving]
  - Miosis [Recovering/Resolving]
  - Asthenia [Recovering/Resolving]
  - Blood pressure increased [Recovering/Resolving]
